FAERS Safety Report 13451374 (Version 1)
Quarter: 2017Q2

REPORT INFORMATION
  Report Type: Spontaneous
  Country: US (occurrence: US)
  Receive Date: 20170417
  Receipt Date: 20170417
  Transmission Date: 20170830
  Serious: Yes (Life-Threatening, Hospitalization, Disabling)
  Sender: FDA-Public Use
  Company Number: None

PATIENT
  Age: 46 Year
  Sex: Female
  Weight: 85.5 kg

DRUGS (1)
  1. AZURETTE [Suspect]
     Active Substance: DESOGESTREL\ETHINYL ESTRADIOL
     Indication: MENOPAUSAL SYMPTOMS
     Dates: start: 20150301, end: 20150724

REACTIONS (5)
  - Pulmonary embolism [None]
  - Weight increased [None]
  - Dyspnoea [None]
  - Deep vein thrombosis [None]
  - Heart rate increased [None]

NARRATIVE: CASE EVENT DATE: 20150724
